FAERS Safety Report 15778972 (Version 1)
Quarter: 2019Q1

REPORT INFORMATION
  Report Type: Spontaneous
  Country: US (occurrence: US)
  Receive Date: 20190101
  Receipt Date: 20190101
  Transmission Date: 20190417
  Serious: No
  Sender: FDA-Public Use
  Company Number: US-ACCORD-064032

PATIENT
  Age: 53 Year
  Sex: Female

DRUGS (1)
  1. SERTRALINE ACCORD [Suspect]
     Active Substance: SERTRALINE HYDROCHLORIDE
     Indication: PRODUCT USED FOR UNKNOWN INDICATION
     Dosage: STRENGTH: 100 MG?DOSE: 100 MG QD AM
     Route: 048
     Dates: start: 20171106

REACTIONS (2)
  - Product substitution issue [Unknown]
  - Panic attack [Unknown]

NARRATIVE: CASE EVENT DATE: 20171106
